FAERS Safety Report 6398228-7 (Version None)
Quarter: 2009Q4

REPORT INFORMATION
  Report Type: 
  Country: None (occurrence: None)
  Receive Date: 20091013
  Receipt Date: 20091001
  Transmission Date: 20100525
  Serious: Yes (Death)
  Sender: FDA-Public Use
  Company Number: PHHY2009JP37181

PATIENT
  Sex: Male

DRUGS (7)
  1. AMN107 AMN+CAP [Suspect]
     Indication: BLAST CRISIS IN MYELOGENOUS LEUKAEMIA
     Dosage: 800 MG DAILY
     Route: 048
     Dates: start: 20090610, end: 20090623
  2. BOSUTINIB [Concomitant]
     Indication: CHRONIC MYELOID LEUKAEMIA
     Dosage: 500 MG
     Route: 048
     Dates: start: 20090410, end: 20090427
  3. DASATINIB [Concomitant]
     Indication: CHRONIC MYELOID LEUKAEMIA
     Dosage: 100 MG
     Route: 048
     Dates: start: 20090512, end: 20090609
  4. ONCOVIN [Concomitant]
     Dosage: 2 MG
     Route: 042
     Dates: start: 20090501, end: 20090721
  5. STARASID [Concomitant]
     Indication: CHRONIC MYELOID LEUKAEMIA
     Dosage: 50 MG
     Route: 048
     Dates: start: 20090624, end: 20090728
  6. PREDONINE [Concomitant]
     Indication: CHRONIC MYELOID LEUKAEMIA
     Dosage: 15 MG
     Route: 048
     Dates: start: 20090610, end: 20090728
  7. MYCOSYST [Concomitant]
     Indication: PROPHYLAXIS
     Dosage: 200 MG
     Route: 048
     Dates: start: 20090610, end: 20090728

REACTIONS (3)
  - AGRANULOCYTOSIS [None]
  - BRONCHOPULMONARY ASPERGILLOSIS [None]
  - DRUG INEFFECTIVE [None]
